FAERS Safety Report 5518308-5 (Version None)
Quarter: 2007Q4

REPORT INFORMATION
  Report Type: 
  Country: None (occurrence: None)
  Receive Date: 20071113
  Receipt Date: 20071029
  Transmission Date: 20080405
  Serious: Yes (Hospitalization, Disabling)
  Sender: FDA-Public Use
  Company Number: GXKR2007GB09413

PATIENT
  Age: 25 Year
  Sex: Male

DRUGS (4)
  1. CEFTAZIDIME [Suspect]
     Indication: EYE INFECTION
     Dosage: EVERY 30 MINUTES, TOPICAL
     Route: 061
  2. PENICILLIN G [Suspect]
     Indication: EYE INFECTION
     Dosage: EVERY 30 MINUTES, TOPICAL
     Route: 061
  3. CIPROFLOXACIN [Suspect]
     Indication: EYE INFECTION
     Dosage: 750 MG, BID, ORAL
     Route: 048
  4. NETILMICIN SULFATE [Suspect]
     Indication: EYE INFECTION
     Dosage: 200 MG/DAY

REACTIONS (8)
  - CONDITION AGGRAVATED [None]
  - CORNEAL PERFORATION [None]
  - DISEASE PROGRESSION [None]
  - EYE EXCISION [None]
  - HYPOPYON [None]
  - IRIS DISORDER [None]
  - KERATITIS [None]
  - KERATITIS BACTERIAL [None]
